FAERS Safety Report 5765910-1 (Version None)
Quarter: 2008Q2

REPORT INFORMATION
  Report Type: 
  Country: None (occurrence: None)
  Receive Date: 20080611
  Receipt Date: 20070523
  Transmission Date: 20081010
  Serious: No
  Sender: FDA-Public Use
  Company Number: US-BRISTOL-MYERS SQUIBB COMPANY-13790324

PATIENT
  Age: 75 Year
  Sex: Male

DRUGS (7)
  1. SINEMET [Suspect]
     Indication: PARKINSON'S DISEASE
     Route: 048
     Dates: start: 20050101
  2. PLAVIX [Concomitant]
  3. ISOSORBIDE DINITRATE [Concomitant]
  4. METOPROLOL [Concomitant]
  5. CRESTOR [Concomitant]
  6. WARFARIN SODIUM [Concomitant]
  7. SEROQUEL [Concomitant]

REACTIONS (1)
  - DRUG INEFFECTIVE [None]
